FAERS Safety Report 19572687 (Version 1)
Quarter: 2021Q3

REPORT INFORMATION
  Report Type: Spontaneous
  Country: IE (occurrence: IE)
  Receive Date: 20210716
  Receipt Date: 20210716
  Transmission Date: 20211014
  Serious: Yes (Disabling, Other)
  Sender: FDA-Public Use
  Company Number: IE-ELI_LILLY_AND_COMPANY-IE202107002131

PATIENT
  Sex: Female
  Weight: 74.46 kg

DRUGS (4)
  1. ZYPREXA [Suspect]
     Active Substance: OLANZAPINE
     Indication: SCHIZOPHRENIA
     Dosage: SLOWLY REDUCING IT OVER THE YEARS
     Route: 065
     Dates: start: 200208, end: 200603
  2. ZYPREXA [Suspect]
     Active Substance: OLANZAPINE
     Dosage: REDUCED AND STOPPED OVER TWO MONTHS
     Route: 065
     Dates: start: 200905, end: 200909
  3. ZYPREXA [Suspect]
     Active Substance: OLANZAPINE
     Dosage: DAILY DOSE: 10MG
     Route: 048
     Dates: start: 201009, end: 201503
  4. ABILIFY [Concomitant]
     Active Substance: ARIPIPRAZOLE
     Dosage: UNK, UNKNOWN
     Route: 065
     Dates: start: 201503

REACTIONS (1)
  - Back disorder [Not Recovered/Not Resolved]

NARRATIVE: CASE EVENT DATE: 20150317
